FAERS Safety Report 15918370 (Version 2)
Quarter: 2019Q4

REPORT INFORMATION
  Report Type: Spontaneous
  Country: US (occurrence: US)
  Receive Date: 20190205
  Receipt Date: 20191115
  Transmission Date: 20200122
  Serious: No
  Sender: FDA-Public Use
  Company Number: US-SA-2019SA026028

PATIENT
  Sex: Female

DRUGS (7)
  1. VITAMIN C [CALCIUM ASCORBATE] [Concomitant]
     Active Substance: CALCIUM ASCORBATE
  2. LYRICA [Concomitant]
     Active Substance: PREGABALIN
  3. DULOXETINE. [Suspect]
     Active Substance: DULOXETINE
     Dosage: 30 UNK
  4. DULOXETINE. [Suspect]
     Active Substance: DULOXETINE
     Dosage: 60 UNK
  5. VITAMIN D NOS [Concomitant]
     Active Substance: VITAMIN D NOS
  6. BACLOFEN. [Concomitant]
     Active Substance: BACLOFEN
  7. AUBAGIO [Suspect]
     Active Substance: TERIFLUNOMIDE
     Indication: MULTIPLE SCLEROSIS
     Dosage: 14 MG, QD
     Route: 048
     Dates: start: 2017

REACTIONS (4)
  - Unevaluable event [Not Recovered/Not Resolved]
  - Somnolence [Not Recovered/Not Resolved]
  - Depression [Unknown]
  - Decreased interest [Not Recovered/Not Resolved]

NARRATIVE: CASE EVENT DATE: 201901
